FAERS Safety Report 7497416-6 (Version None)
Quarter: 2011Q2

REPORT INFORMATION
  Report Type: 
  Country: None (occurrence: None)
  Receive Date: 20110523
  Receipt Date: 20110513
  Transmission Date: 20111010
  Serious: Yes (Other)
  Sender: FDA-Public Use
  Company Number: US-ASTRAZENECA-2011SE29247

PATIENT
  Age: 60 Year
  Sex: Female

DRUGS (5)
  1. NEXIUM [Suspect]
     Indication: GASTROOESOPHAGEAL REFLUX DISEASE
     Route: 048
     Dates: start: 20010101
  2. ATENOLOL [Concomitant]
     Indication: HEART RATE INCREASED
  3. ATENOLOL [Concomitant]
     Indication: HYPERTENSION
  4. CPAP [Concomitant]
     Indication: SLEEP APNOEA SYNDROME
  5. NEXIUM [Suspect]
     Indication: GASTRIC ULCER
     Route: 048
     Dates: start: 20010101

REACTIONS (3)
  - OSTEOPENIA [None]
  - WRIST FRACTURE [None]
  - FALL [None]
